FAERS Safety Report 24931660 (Version 1)
Quarter: 2025Q1

REPORT INFORMATION
  Report Type: Report from Study
  Country: IT (occurrence: IT)
  Receive Date: 20250205
  Receipt Date: 20250205
  Transmission Date: 20250409
  Serious: No
  Sender: ASTELLAS
  Company Number: IT-ASTELLAS-2025-AER-006911

PATIENT
  Sex: Female

DRUGS (2)
  1. FEZOLINETANT [Suspect]
     Active Substance: FEZOLINETANT
     Indication: Menopausal symptoms
     Route: 065
  2. FEZOLINETANT [Suspect]
     Active Substance: FEZOLINETANT
     Indication: Night sweats

REACTIONS (2)
  - Drug ineffective [Unknown]
  - Inappropriate schedule of product administration [Unknown]
